FAERS Safety Report 12271200 (Version 1)
Quarter: 2016Q2

REPORT INFORMATION
  Report Type: Spontaneous
  Country: DE (occurrence: DE)
  Receive Date: 20160415
  Receipt Date: 20160415
  Transmission Date: 20160815
  Serious: Yes (Other)
  Sender: FDA-Public Use
  Company Number: DE-SUN PHARMACEUTICAL INDUSTRIES LTD-2016RR-114916

PATIENT
  Age: 1 Day
  Sex: Male
  Weight: 3.2 kg

DRUGS (7)
  1. OLANZAPINE. [Suspect]
     Active Substance: OLANZAPINE
     Indication: BIPOLAR DISORDER
     Dosage: 15 (MG/DAY)/ IN THE BEGINNING 10 MG/DAY, AFTER GW 32+6 15 MG AND 10 MG ALTERNATING
     Route: 064
     Dates: start: 20141127, end: 20150825
  2. FEMIBION [Concomitant]
     Active Substance: VITAMINS
     Indication: PROPHYLAXIS OF NEURAL TUBE DEFECT
     Dosage: 10-38.5 GESTATIONAL WEEK
     Route: 064
  3. PANTOPRAZOL [Concomitant]
     Active Substance: PANTOPRAZOLE SODIUM
     Indication: PROPHYLAXIS AGAINST GASTROINTESTINAL ULCER
     Dosage: 40 MG, DAILY; 0-38.5 GESTATIONAL WEEK
     Route: 064
     Dates: start: 20141127, end: 20150825
  4. BISOPROLOL [Concomitant]
     Active Substance: BISOPROLOL
     Indication: GESTATIONAL HYPERTENSION
     Dosage: 1.25 MG, QD, 21-38.5 GESTATIONAL WEEK
     Route: 064
  5. LIITHIUM ^APOGEPHA^ [Concomitant]
     Indication: BIPOLAR DISORDER
     Dosage: 0-8 GESTATIONAL WEEK
     Route: 064
  6. L-THYROX [Concomitant]
     Active Substance: LEVOTHYROXINE SODIUM
     Indication: HYPOTHYROIDISM
     Dosage: 100 ?G, DAILY, 0-38.5 GESTATIONAL WEEK
     Route: 064
     Dates: start: 20141127, end: 20150825
  7. AKINETON [Concomitant]
     Active Substance: BIPERIDEN HYDROCHLORIDE
     Indication: EXTRAPYRAMIDAL DISORDER
     Dosage: 0-8 GESTATIONAL WEEK
     Route: 064

REACTIONS (2)
  - Hypoglycaemia neonatal [Recovered/Resolved]
  - Selective eating disorder [Recovered/Resolved]

NARRATIVE: CASE EVENT DATE: 20150825
